FAERS Safety Report 10591322 (Version 2)
Quarter: 2014Q4

REPORT INFORMATION
  Report Type: Spontaneous
  Country: ES (occurrence: None)
  Receive Date: 20141113
  Receipt Date: 20141208
  Transmission Date: 20150529
  Serious: Yes (Hospitalization)
  Sender: FDA-Public Use
  Company Number: TPU2014-00348

PATIENT
  Age: 65 Year
  Sex: Male

DRUGS (7)
  1. ASCORBIC ACID. [Concomitant]
     Active Substance: ASCORBIC ACID
  2. FESOTERODINE FUMARATE [Concomitant]
     Active Substance: FESOTERODINE FUMARATE
  3. POTASSIUM BICARBONATE. [Concomitant]
     Active Substance: POTASSIUM BICARBONATE
  4. TAMSULOSINE (TAMSULOSIN HYDROCHLORIDE) [Concomitant]
  5. VERSATIS [Suspect]
     Active Substance: LIDOCAINE
     Indication: BACK PAIN
     Route: 061
     Dates: start: 201407, end: 201409
  6. VALSARTAN. [Concomitant]
     Active Substance: VALSARTAN
  7. LACIDIPINE [Concomitant]
     Active Substance: LACIDIPINE

REACTIONS (3)
  - Pneumonia [None]
  - Dyspnoea [None]
  - Obliterative bronchiolitis [None]

NARRATIVE: CASE EVENT DATE: 201408
